FAERS Safety Report 4806885-9 (Version None)
Quarter: 2005Q4

REPORT INFORMATION
  Report Type: 
  Country: None (occurrence: None)
  Receive Date: 20051019
  Receipt Date: 20051006
  Transmission Date: 20060501
  Serious: Yes (Hospitalization)
  Sender: FDA-Public Use
  Company Number: 2005140292

PATIENT
  Age: 36 Year
  Sex: Male

DRUGS (4)
  1. GENOTROPIN [Suspect]
     Indication: OFF LABEL USE
     Dosage: 6 I.U.
  2. TESTOSTERONE PROPIONATE  (TESTOSTERONE PROPIONATE) [Concomitant]
  3. STANOZOLOL     (STANOZOLOL) [Concomitant]
  4. ANABOLIC STEROIDS   (ANABOLIC STEROIDS) [Concomitant]

REACTIONS (7)
  - DISEASE RECURRENCE [None]
  - DRUG ABUSER [None]
  - DYSPHONIA [None]
  - DYSPNOEA [None]
  - LARYNGEAL OEDEMA [None]
  - LARYNGOCELE [None]
  - STRIDOR [None]
